FAERS Safety Report 13361059 (Version 1)
Quarter: 2017Q1

REPORT INFORMATION
  Report Type: Spontaneous
  Country: US (occurrence: US)
  Receive Date: 20170322
  Receipt Date: 20170322
  Transmission Date: 20170429
  Serious: No
  Sender: FDA-Public Use
  Company Number: US-GILEAD-2017-0263580

PATIENT
  Sex: Female

DRUGS (3)
  1. RANEXA [Suspect]
     Active Substance: RANOLAZINE
     Indication: PRODUCT USED FOR UNKNOWN INDICATION
     Route: 065
  2. NESIRITIDE [Concomitant]
     Active Substance: NESIRITIDE
  3. COREG [Concomitant]
     Active Substance: CARVEDILOL

REACTIONS (1)
  - Therapeutic response unexpected [Unknown]
